FAERS Safety Report 9450849 (Version 1)
Quarter: 2013Q3

REPORT INFORMATION
  Report Type: Spontaneous
  Country: US (occurrence: US)
  Receive Date: 20130809
  Receipt Date: 20130809
  Transmission Date: 20140515
  Serious: No
  Sender: FDA-Public Use
  Company Number: US-B.I. PHARMACEUTICALS,INC./RIDGEFIELD-2013-BI-23723BP

PATIENT
  Sex: Female
  Weight: 123 kg

DRUGS (4)
  1. SPIRIVA [Suspect]
     Indication: ASTHMA
     Dosage: 18 MCG
     Route: 055
     Dates: start: 2008
  2. THEOPHYLLINE [Concomitant]
     Indication: ASTHMA
     Dosage: 600 MG
     Route: 048
  3. PROVENTIL INHALER [Concomitant]
     Indication: ASTHMA
     Dosage: 8 PUF
     Route: 055
  4. ADVAIR [Concomitant]
     Indication: ASTHMA
     Dosage: STRENGTH: 250 MCG / 50 MCG; DAILY DOSE: 500 MCG / 100 MCG
     Route: 055

REACTIONS (3)
  - Fall [Recovered/Resolved]
  - Humerus fracture [Recovered/Resolved]
  - Off label use [Not Recovered/Not Resolved]
